FAERS Safety Report 12474509 (Version 2)
Quarter: 2016Q2

REPORT INFORMATION
  Report Type: Spontaneous
  Country: DE (occurrence: DE)
  Receive Date: 20160617
  Receipt Date: 20160629
  Transmission Date: 20160815
  Serious: Yes (Death, Other)
  Sender: FDA-Public Use
  Company Number: DE-ROCHE-1775544

PATIENT
  Age: 43 Year
  Sex: Male
  Weight: 133 kg

DRUGS (9)
  1. AKINETON [Concomitant]
     Active Substance: BIPERIDEN HYDROCHLORIDE
     Route: 048
  2. DIAZEPAM. [Suspect]
     Active Substance: DIAZEPAM
     Indication: PRODUCT USED FOR UNKNOWN INDICATION
     Route: 065
  3. ABILIFY [Interacting]
     Active Substance: ARIPIPRAZOLE
     Indication: PRODUCT USED FOR UNKNOWN INDICATION
     Dosage: ONCE IN A DAY
     Route: 048
  4. GASTROZEPIN [Concomitant]
     Active Substance: PIRENZEPINE HYDROCHLORIDE
     Route: 048
  5. DIAZEPAM. [Interacting]
     Active Substance: DIAZEPAM
     Dosage: ONCE A DAY
     Route: 065
  6. VALPROAT [Interacting]
     Active Substance: VALPROATE SODIUM
     Indication: PRODUCT USED FOR UNKNOWN INDICATION
     Dosage: ONCE IN A DAY
     Route: 048
  7. OLANZAPIN ARISTO [Interacting]
     Active Substance: OLANZAPINE
     Indication: PRODUCT USED FOR UNKNOWN INDICATION
     Dosage: 5 TO 10 MG AS REQUIRED
     Route: 048
  8. TAVOR EXPIDET [Interacting]
     Active Substance: LORAZEPAM
     Indication: PRODUCT USED FOR UNKNOWN INDICATION
     Route: 048
  9. GLIANIMON [Interacting]
     Active Substance: BENPERIDOL
     Indication: PRODUCT USED FOR UNKNOWN INDICATION
     Dosage: 4-0-4
     Route: 048

REACTIONS (3)
  - Sudden death [Fatal]
  - Sedation [Unknown]
  - Drug interaction [Fatal]

NARRATIVE: CASE EVENT DATE: 20150616
